FAERS Safety Report 5307911-3 (Version None)
Quarter: 2007Q1

REPORT INFORMATION
  Report Type: 
  Country: None (occurrence: None)
  Receive Date: 20070201
  Receipt Date: 20061227
  Transmission Date: 20070707
  Serious: No
  Sender: FDA-Public Use
  Company Number: 2006PV027438

PATIENT
  Age: 67 Year
  Sex: Female
  Weight: 122.4712 kg

DRUGS (10)
  1. BYETTA [Suspect]
     Indication: DRUG USE FOR UNKNOWN INDICATION
     Dosage: SEE IMAGE
     Route: 058
     Dates: start: 20061117, end: 20061217
  2. BYETTA [Suspect]
     Indication: DRUG USE FOR UNKNOWN INDICATION
     Dosage: SEE IMAGE
     Route: 058
     Dates: start: 20061218
  3. METFORMIN HCL [Concomitant]
  4. GLIPIZIDE [Concomitant]
  5. LEVOTHYROXINE SODIUM [Concomitant]
  6. ALTACE [Concomitant]
  7. FUROSEMIDE [Concomitant]
  8. TOPROL-XL [Concomitant]
  9. VYTORIN [Concomitant]
  10. GLIPIZIDE [Concomitant]

REACTIONS (5)
  - BLOOD GLUCOSE INCREASED [None]
  - CONTUSION [None]
  - FALL [None]
  - GOUT [None]
  - INJECTION SITE PAIN [None]
